FAERS Safety Report 10608075 (Version 2)
Quarter: 2014Q4

REPORT INFORMATION
  Report Type: Spontaneous
  Country: US (occurrence: US)
  Receive Date: 20141125
  Receipt Date: 20141205
  Transmission Date: 20150529
  Serious: No
  Sender: FDA-Public Use
  Company Number: US-BRISTOL-MYERS SQUIBB COMPANY-21227095

PATIENT
  Age: 51 Year
  Sex: Female

DRUGS (6)
  1. LIOTHYRONINE [Concomitant]
     Active Substance: LIOTHYRONINE
  2. COENZYME Q10 [Concomitant]
     Active Substance: UBIDECARENONE
  3. ZETIA [Concomitant]
     Active Substance: EZETIMIBE
  4. FARXIGA [Suspect]
     Active Substance: DAPAGLIFLOZIN PROPANEDIOL
     Indication: TYPE 2 DIABETES MELLITUS
     Route: 048
     Dates: start: 20140610, end: 20140629
  5. VITAMIN D [Concomitant]
     Active Substance: CHOLECALCIFEROL
  6. MULTIVITAMIN [Concomitant]
     Active Substance: VITAMINS

REACTIONS (3)
  - Stomatitis [Recovered/Resolved]
  - Blood glucose increased [Recovered/Resolved]
  - Fungal infection [Recovered/Resolved]

NARRATIVE: CASE EVENT DATE: 20140612
